FAERS Safety Report 19125054 (Version 2)
Quarter: 2021Q4

REPORT INFORMATION
  Report Type: Spontaneous
  Country: US (occurrence: US)
  Receive Date: 20210412
  Receipt Date: 20211215
  Transmission Date: 20220303
  Serious: No
  Sender: FDA-Public Use
  Company Number: US-PFIZER INC-2021372868

PATIENT
  Age: 49 Year
  Sex: Female
  Weight: 90.703 kg

DRUGS (1)
  1. GABAPENTIN [Suspect]
     Active Substance: GABAPENTIN
     Indication: Neuropathy peripheral
     Dosage: UNK

REACTIONS (3)
  - Disturbance in attention [Unknown]
  - Pain [Unknown]
  - Off label use [Unknown]
